FAERS Safety Report 4878668-5 (Version None)
Quarter: 2006Q1

REPORT INFORMATION
  Report Type: 
  Country: None (occurrence: None)
  Receive Date: 20060110
  Receipt Date: 20051229
  Transmission Date: 20060701
  Serious: Yes (Other)
  Sender: FDA-Public Use
  Company Number: 2006002044

PATIENT
  Sex: Female

DRUGS (2)
  1. LYRICA [Suspect]
     Indication: ILL-DEFINED DISORDER
  2. PROPOFOL [Suspect]
     Indication: ANAESTHESIA

REACTIONS (2)
  - ANAESTHETIC COMPLICATION [None]
  - DRUG INTERACTION [None]
